FAERS Safety Report 8805594 (Version 1)
Quarter: 2012Q4

REPORT INFORMATION
  Report Type: Report from Study
  Country: ES (occurrence: ES)
  Receive Date: 20120924
  Receipt Date: 20120924
  Transmission Date: 20130627
  Serious: Yes (Other)
  Sender: FDA-Public Use
  Company Number: ES-ROCHE-1133626

PATIENT
  Age: 49 Year
  Sex: Female

DRUGS (1)
  1. MABTHERA [Suspect]
     Indication: B-CELL LYMPHOMA
     Route: 042

REACTIONS (3)
  - Cardio-respiratory arrest [Unknown]
  - Dyspnoea [Unknown]
  - Oedema mucosal [Unknown]
